FAERS Safety Report 23977736 (Version 2)
Quarter: 2024Q2

REPORT INFORMATION
  Report Type: Spontaneous
  Country: US (occurrence: US)
  Receive Date: 20240614
  Receipt Date: 20240620
  Transmission Date: 20240716
  Serious: No
  Sender: FDA-Public Use
  Company Number: US-AMGEN-USASP2024115768

PATIENT
  Age: 74 Year
  Sex: Male

DRUGS (1)
  1. REPATHA [Suspect]
     Active Substance: EVOLOCUMAB
     Indication: Blood cholesterol abnormal
     Dosage: 420 MILLIGRAM
     Route: 058

REACTIONS (6)
  - Incorrect dose administered by device [Unknown]
  - Device difficult to use [Unknown]
  - Product preparation error [Unknown]
  - Low density lipoprotein increased [Unknown]
  - Anxiety [Unknown]
  - Product supply issue [Unknown]

NARRATIVE: CASE EVENT DATE: 20240101
